FAERS Safety Report 25786082 (Version 1)
Quarter: 2025Q3

REPORT INFORMATION
  Report Type: Spontaneous
  Country: US (occurrence: US)
  Receive Date: 20250910
  Receipt Date: 20250910
  Transmission Date: 20251020
  Serious: Yes (Other)
  Sender: AMGEN
  Company Number: US-AMGEN-USASP2025176610

PATIENT
  Age: 63 Year
  Sex: Female

DRUGS (11)
  1. RITUXIMAB [Suspect]
     Active Substance: RITUXIMAB
     Indication: Diffuse large B-cell lymphoma stage IV
     Route: 065
  2. RITUXIMAB [Suspect]
     Active Substance: RITUXIMAB
     Route: 065
  3. PREDNISONE [Suspect]
     Active Substance: PREDNISONE
     Indication: Diffuse large B-cell lymphoma stage IV
     Route: 065
  4. PREDNISONE [Suspect]
     Active Substance: PREDNISONE
     Route: 065
  5. CYCLOPHOSPHAMIDE [Concomitant]
     Active Substance: CYCLOPHOSPHAMIDE
     Indication: Diffuse large B-cell lymphoma stage IV
  6. CYCLOPHOSPHAMIDE [Concomitant]
     Active Substance: CYCLOPHOSPHAMIDE
  7. EPIRUBICIN [Concomitant]
     Active Substance: EPIRUBICIN
     Indication: Diffuse large B-cell lymphoma stage IV
  8. EPIRUBICIN [Concomitant]
     Active Substance: EPIRUBICIN
  9. ONCOVIN [Concomitant]
     Active Substance: VINCRISTINE SULFATE
     Indication: Diffuse large B-cell lymphoma stage IV
  10. ONCOVIN [Concomitant]
     Active Substance: VINCRISTINE SULFATE
  11. CYTARABINE [Concomitant]
     Active Substance: CYTARABINE
     Indication: Diffuse large B-cell lymphoma stage IV
     Route: 029

REACTIONS (3)
  - Immunosuppression [Unknown]
  - Infection [Unknown]
  - Therapy partial responder [Unknown]
